FAERS Safety Report 24593933 (Version 5)
Quarter: 2025Q2

REPORT INFORMATION
  Report Type: Spontaneous
  Country: JP (occurrence: JP)
  Receive Date: 20241108
  Receipt Date: 20250407
  Transmission Date: 20250717
  Serious: Yes (Death, Hospitalization, Other)
  Sender: GILEAD
  Company Number: JP-GILEAD-2024-0688765

PATIENT
  Age: 64 Year
  Sex: Male
  Weight: 52.1 kg

DRUGS (31)
  1. YESCARTA [Suspect]
     Active Substance: AXICABTAGENE CILOLEUCEL
     Indication: High-grade B-cell lymphoma
     Route: 065
     Dates: start: 20241015, end: 20241015
  2. DEXAMETHASONE [Suspect]
     Active Substance: DEXAMETHASONE
     Indication: Immune effector cell-associated neurotoxicity syndrome
     Route: 065
     Dates: start: 20241015, end: 20241016
  3. DEXAMETHASONE [Suspect]
     Active Substance: DEXAMETHASONE
     Indication: Cytokine release syndrome
     Dosage: 10 MG, TID
     Route: 065
     Dates: start: 20241017, end: 20241018
  4. DEXAMETHASONE [Suspect]
     Active Substance: DEXAMETHASONE
     Indication: Prophylaxis
     Route: 065
     Dates: start: 20241019, end: 20241021
  5. DEXAMETHASONE [Suspect]
     Active Substance: DEXAMETHASONE
     Route: 065
     Dates: start: 20241025, end: 20241028
  6. DEXAMETHASONE [Suspect]
     Active Substance: DEXAMETHASONE
     Route: 065
     Dates: start: 2024
  7. CYCLOPHOSPHAMIDE [Concomitant]
     Active Substance: CYCLOPHOSPHAMIDE
     Indication: Lymphodepletion
     Dates: start: 20241007, end: 20241009
  8. CYCLOPHOSPHAMIDE [Concomitant]
     Active Substance: CYCLOPHOSPHAMIDE
     Indication: Chemotherapy
  9. FLUDARA [Concomitant]
     Active Substance: FLUDARABINE PHOSPHATE
     Indication: Lymphodepletion
     Dates: start: 20241007, end: 20241009
  10. FLUDARA [Concomitant]
     Active Substance: FLUDARABINE PHOSPHATE
     Indication: Chemotherapy
  11. NOXAFIL [Concomitant]
     Active Substance: POSACONAZOLE
     Dates: end: 20241017
  12. ACYCLOVIR [Concomitant]
     Active Substance: ACYCLOVIR
     Dates: end: 20241016
  13. ACYCLOVIR [Concomitant]
     Active Substance: ACYCLOVIR
     Dates: start: 20241017, end: 20241106
  14. ESOMEPRAZOLE [Concomitant]
     Active Substance: ESOMEPRAZOLE
     Dates: end: 20241021
  15. DAYVIGO [Concomitant]
     Active Substance: LEMBOREXANT
     Dates: end: 20241021
  16. LEVETIRACETAM [Concomitant]
     Active Substance: LEVETIRACETAM
     Indication: Prophylaxis
     Dates: start: 20241017, end: 20241021
  17. AMLODIPINE [Concomitant]
     Active Substance: AMLODIPINE BESYLATE
     Dates: end: 20241021
  18. SODIUM GUALENATE [Concomitant]
     Active Substance: SODIUM GUALENATE
     Dates: end: 20241021
  19. LIDOCAINE HYDROCHLORIDE [Concomitant]
     Active Substance: LIDOCAINE HYDROCHLORIDE
     Dates: end: 20241021
  20. DICLOFENAC SODIUM [Concomitant]
     Active Substance: DICLOFENAC SODIUM
     Dates: end: 20241021
  21. KETOPROFEN [Concomitant]
     Active Substance: KETOPROFEN
     Dates: end: 20241021
  22. MEROPENEM [Concomitant]
     Active Substance: MEROPENEM
     Dates: end: 20241021
  23. VANCOMYCIN HYDROCHLORIDE [Concomitant]
     Active Substance: VANCOMYCIN HYDROCHLORIDE
     Dates: start: 20241010, end: 20241028
  24. PIPERACILLIN SODIUM\TAZOBACTAM SODIUM [Concomitant]
     Active Substance: PIPERACILLIN SODIUM\TAZOBACTAM SODIUM
     Dates: start: 20241022, end: 20241104
  25. CEFEPIME [Concomitant]
     Active Substance: CEFEPIME HYDROCHLORIDE
     Dates: start: 20241105
  26. MICAFUNGIN [Concomitant]
     Active Substance: MICAFUNGIN SODIUM
     Dates: start: 20241018, end: 20241023
  27. NICARDIPINE HYDROCHLORIDE [Concomitant]
     Active Substance: NICARDIPINE HYDROCHLORIDE
     Dates: start: 20241017
  28. DEXMEDETOMIDINE [Concomitant]
     Active Substance: DEXMEDETOMIDINE
     Dates: start: 20241017
  29. NITROGLYCERIN [Concomitant]
     Active Substance: NITROGLYCERIN
     Dates: start: 20241017
  30. TELMISARTAN [Concomitant]
     Active Substance: TELMISARTAN
     Dates: start: 20241019
  31. ACTEMRA [Concomitant]
     Active Substance: TOCILIZUMAB
     Dates: start: 20241020

REACTIONS (14)
  - High-grade B-cell lymphoma [Fatal]
  - Immune effector cell-associated neurotoxicity syndrome [Fatal]
  - High-grade B-cell lymphoma [Unknown]
  - Cytokine release syndrome [Recovered/Resolved]
  - Immune effector cell-associated neurotoxicity syndrome [Recovering/Resolving]
  - Tumour invasion [Unknown]
  - Tumour invasion [Unknown]
  - High-grade B-cell lymphoma [Recovering/Resolving]
  - Prerenal failure [Recovering/Resolving]
  - Postrenal failure [Recovering/Resolving]
  - Tumour lysis syndrome [Unknown]
  - Hyperuricaemia [Unknown]
  - Blood lactate dehydrogenase increased [Unknown]
  - Haematotoxicity [Unknown]

NARRATIVE: CASE EVENT DATE: 20240101
